FAERS Safety Report 9617621 (Version 1)
Quarter: 2013Q4

REPORT INFORMATION
  Report Type: Spontaneous
  Country: US (occurrence: None)
  Receive Date: 20131009
  Receipt Date: 20131009
  Transmission Date: 20140711
  Serious: Yes (Death)
  Sender: FDA-Public Use
  Company Number: 2013AP008538

PATIENT
  Age: 57 Year
  Sex: Female

DRUGS (7)
  1. TRAMADOL HYDROCHLORIDE TABELTS [Suspect]
     Route: 048
  2. PAROXETINE HCL TABLETS [Suspect]
  3. DILTIAZEM [Suspect]
     Route: 048
  4. DIPHENHYDRAMINE [Suspect]
     Route: 048
  5. HYOSCYAMINE [Suspect]
  6. CYCLOBENZAPRINE [Suspect]
  7. ACETAMINOPHEN W/HYDROCODONE [Suspect]
     Route: 048

REACTIONS (1)
  - Intentional drug misuse [None]
